FAERS Safety Report 16695340 (Version 1)
Quarter: 2019Q3

REPORT INFORMATION
  Report Type: Spontaneous
  Country: GB (occurrence: GB)
  Receive Date: 20190813
  Receipt Date: 20190813
  Transmission Date: 20191004
  Serious: Yes (Other)
  Sender: FDA-Public Use
  Company Number: GB-PERRIGO-19GB009482

PATIENT
  Age: 49 Year
  Sex: Female
  Weight: 65 kg

DRUGS (1)
  1. NICOTINE POLACRILEX [Suspect]
     Active Substance: NICOTINE
     Indication: SMOKING CESSATION THERAPY
     Dosage: A FEW LOZENGES A DAY
     Route: 048
     Dates: start: 20170101, end: 20170901

REACTIONS (5)
  - Infection [Unknown]
  - Inflammation [Unknown]
  - Haemorrhoids [Unknown]
  - Reaction to excipient [Unknown]
  - Gastrointestinal pain [Recovered/Resolved with Sequelae]

NARRATIVE: CASE EVENT DATE: 20170101
